FAERS Safety Report 6724145-6 (Version None)
Quarter: 2010Q2

REPORT INFORMATION
  Report Type: 
  Country: None (occurrence: None)
  Receive Date: 20100513
  Receipt Date: 20100503
  Transmission Date: 20101027
  Serious: Yes (Hospitalization)
  Sender: FDA-Public Use
  Company Number: FR-JNJFOC-20100501082

PATIENT
  Age: 44 Year
  Sex: Male

DRUGS (7)
  1. REMICADE [Suspect]
     Indication: PSORIASIS
     Dosage: 28TH INFUSION
     Route: 042
  2. REMICADE [Suspect]
     Route: 042
  3. LERCAN 10 [Suspect]
     Indication: DRUG USE FOR UNKNOWN INDICATION
  4. METHOTREXATE [Concomitant]
     Dosage: LONG TERM TREATMENT
     Route: 048
  5. SPECIAFOLDINE [Concomitant]
     Route: 048
  6. APRANAX [Concomitant]
     Route: 048
  7. COTEVETEN [Concomitant]

REACTIONS (2)
  - ACUTE CORONARY SYNDROME [None]
  - SKIN PLAQUE [None]
